FAERS Safety Report 7672919-X (Version None)
Quarter: 2011Q3

REPORT INFORMATION
  Report Type: 
  Country: None (occurrence: None)
  Receive Date: 20110809
  Receipt Date: 20110803
  Transmission Date: 20111222
  Serious: Yes (Other)
  Sender: FDA-Public Use
  Company Number: PHEH2010US03475

PATIENT
  Sex: Female

DRUGS (6)
  1. ZELNORM [Suspect]
     Dosage: 6 MG, BID
     Dates: start: 20051013
  2. AMPICILLIN SODIUM [Concomitant]
  3. ROBITUSSIN ^WYETH^ [Concomitant]
  4. PROTONIX [Concomitant]
  5. CYMBALTA [Concomitant]
  6. PRILOSEC [Concomitant]

REACTIONS (11)
  - ARTHRITIS [None]
  - JOINT EFFUSION [None]
  - NASAL CONGESTION [None]
  - CHEST PAIN [None]
  - BRONCHITIS [None]
  - CONSTIPATION [None]
  - IRRITABLE BOWEL SYNDROME [None]
  - COUGH [None]
  - INJURY [None]
  - GASTROOESOPHAGEAL REFLUX DISEASE [None]
  - UPPER RESPIRATORY TRACT INFECTION [None]
